FAERS Safety Report 7618863-5 (Version None)
Quarter: 2011Q3

REPORT INFORMATION
  Report Type: 
  Country: None (occurrence: None)
  Receive Date: 20110718
  Receipt Date: 20110712
  Transmission Date: 20111222
  Serious: Yes (Death, Other)
  Sender: FDA-Public Use
  Company Number: JP-PFIZER INC-2011157376

PATIENT
  Age: 5 Year
  Sex: Male

DRUGS (9)
  1. ALLOPURINOL [Suspect]
     Dosage: UNK
  2. CYCLOPHOSPHAMIDE [Suspect]
     Dosage: UNK
  3. VINCRISTINE [Suspect]
     Indication: BURKITT'S LYMPHOMA
  4. METHOTREXATE SODIUM [Suspect]
     Dosage: UNK
  5. ETOPOSIDE [Suspect]
     Indication: BURKITT'S LYMPHOMA
     Dosage: UNK
  6. SULFAMETHOXAZOLE AND TRIMETHOPRIM [Suspect]
     Dosage: UNK
  7. EPIRUBICIN HYDROCHLORIDE [Suspect]
     Indication: BURKITT'S LYMPHOMA
     Dosage: UNK
  8. PREDNISOLONE [Suspect]
     Dosage: UNK
  9. CYTARABINE [Suspect]
     Indication: BURKITT'S LYMPHOMA
     Dosage: UNK

REACTIONS (1)
  - PULMONARY VENO-OCCLUSIVE DISEASE [None]
